FAERS Safety Report 21611072 (Version 1)
Quarter: 2022Q4

REPORT INFORMATION
  Report Type: Report from Study
  Country: US (occurrence: US)
  Receive Date: 20221117
  Receipt Date: 20221117
  Transmission Date: 20230113
  Serious: Yes (Hospitalization)
  Sender: FDA-Public Use
  Company Number: US-IMMUNOCORE, LTD.-2022-IMC-000627

PATIENT
  Age: 56 Year
  Sex: Female
  Weight: 79.7 kg

DRUGS (8)
  1. TEBENTAFUSP [Suspect]
     Active Substance: TEBENTAFUSP
     Indication: Uveal melanoma
     Dosage: 20 MICROGRAM, SINGLE, C1D1
     Route: 042
     Dates: start: 20220124, end: 20220124
  2. DIPHENHYDRAMINE HYDROCHLORIDE [Concomitant]
     Active Substance: DIPHENHYDRAMINE HYDROCHLORIDE
     Indication: Product used for unknown indication
     Dosage: 25 MILLIGRAM, PRN
     Route: 048
  3. MELATONIN [Concomitant]
     Active Substance: MELATONIN
     Indication: Product used for unknown indication
     Dosage: 5 MILLIGRAM, QD AT NIGHT
     Route: 048
     Dates: start: 20170512
  4. MINOCYCLINE HYDROCHLORIDE [Concomitant]
     Active Substance: MINOCYCLINE HYDROCHLORIDE
     Indication: Product used for unknown indication
     Dosage: 100 MILLIGRAM/TABLET
     Route: 048
     Dates: start: 20170512
  5. MULTIVITAMIN PLUS FISH OIL [Concomitant]
     Indication: Product used for unknown indication
     Dosage: 1 UNK, QD
     Route: 048
  6. OMEPRAZOLE [Concomitant]
     Active Substance: OMEPRAZOLE
     Indication: Product used for unknown indication
     Dosage: 40 MILLIGRAM, QD
     Route: 048
     Dates: start: 20210812
  7. PREDNISONE ACETATE [Concomitant]
     Active Substance: PREDNISONE ACETATE
     Indication: Product used for unknown indication
     Dosage: 10 MILLIGRAM, QD
     Route: 048
     Dates: start: 20210812
  8. ZOLOFT [Concomitant]
     Active Substance: SERTRALINE HYDROCHLORIDE
     Indication: Choroid melanoma
     Dosage: 25 MILLIGRAM, QD
     Route: 048

REACTIONS (9)
  - Pancreatitis [Recovering/Resolving]
  - Diarrhoea [Recovered/Resolved]
  - Cytokine release syndrome [Recovered/Resolved]
  - Tachycardia [Recovering/Resolving]
  - Tachypnoea [Recovering/Resolving]
  - Pyrexia [Recovering/Resolving]
  - Oxygen saturation decreased [Recovered/Resolved]
  - Hypotension [Recovered/Resolved]
  - Lipase increased [Unknown]

NARRATIVE: CASE EVENT DATE: 20220125
